FAERS Safety Report 23765983 (Version 2)
Quarter: 2024Q2

REPORT INFORMATION
  Report Type: Spontaneous
  Country: US (occurrence: US)
  Receive Date: 20240421
  Receipt Date: 20240507
  Transmission Date: 20240716
  Serious: No
  Sender: FDA-Public Use
  Company Number: US-Blueprint Medicines Corporation-3198

PATIENT
  Sex: Female

DRUGS (3)
  1. AYVAKIT [Suspect]
     Active Substance: AVAPRITINIB
     Indication: Advanced systemic mastocytosis
     Route: 065
  2. AYVAKIT [Suspect]
     Active Substance: AVAPRITINIB
     Indication: Mastocytosis
     Route: 065
  3. AYVAKIT [Suspect]
     Active Substance: AVAPRITINIB
     Route: 048
     Dates: start: 20171001

REACTIONS (8)
  - Hair colour changes [Recovering/Resolving]
  - Condition aggravated [Unknown]
  - Nausea [Unknown]
  - Red blood cell count decreased [Unknown]
  - Haemoglobin increased [Unknown]
  - Blood bilirubin decreased [Unknown]
  - Bone pain [Unknown]
  - Unevaluable event [Unknown]
